FAERS Safety Report 10522648 (Version 1)
Quarter: 2014Q4

REPORT INFORMATION
  Report Type: Spontaneous
  Country: US (occurrence: None)
  Receive Date: 20141014
  Receipt Date: 20141014
  Transmission Date: 20150528
  Serious: Yes (Hospitalization)
  Sender: FDA-Public Use
  Company Number: None

PATIENT
  Age: 51 Year
  Sex: Male

DRUGS (3)
  1. LISINOPRIL. [Suspect]
     Active Substance: LISINOPRIL
     Indication: DIABETES MELLITUS
     Dosage: 2.5 MG, EVERY DAY, PO
     Route: 048
     Dates: start: 20140501, end: 20140501
  2. VANCOMYCIN [Suspect]
     Active Substance: VANCOMYCIN
     Indication: SURGERY
     Route: 042
     Dates: start: 20140513, end: 20140605
  3. VANCOMYCIN [Suspect]
     Active Substance: VANCOMYCIN
     Indication: INFECTION
     Route: 042
     Dates: start: 20140513, end: 20140605

REACTIONS (3)
  - Renal tubular necrosis [None]
  - Acute kidney injury [None]
  - Rash [None]

NARRATIVE: CASE EVENT DATE: 20140607
